FAERS Safety Report 22048229 (Version 4)
Quarter: 2023Q2

REPORT INFORMATION
  Report Type: Spontaneous
  Country: US (occurrence: US)
  Receive Date: 20230301
  Receipt Date: 20230630
  Transmission Date: 20230722
  Serious: Yes (Hospitalization)
  Sender: FDA-Public Use
  Company Number: US-SA-SAC20230228000948

PATIENT
  Age: 30 Year
  Sex: Female
  Weight: 115.6 kg

DRUGS (3)
  1. DUPIXENT [Suspect]
     Active Substance: DUPILUMAB
     Indication: Asthma
     Dosage: 200 MG, QOW
     Route: 058
     Dates: start: 20220713
  2. DUPIXENT [Suspect]
     Active Substance: DUPILUMAB
     Indication: Idiopathic urticaria
  3. TAKHZYRO [Concomitant]
     Active Substance: LANADELUMAB-FLYO
     Dosage: UNK

REACTIONS (10)
  - Eye disorder [Unknown]
  - Tongue disorder [Unknown]
  - Oral disorder [Unknown]
  - Condition aggravated [Unknown]
  - Weight increased [Unknown]
  - Mouth swelling [Unknown]
  - Arthropathy [Unknown]
  - Pharyngeal swelling [Unknown]
  - Peripheral swelling [Unknown]
  - Product use in unapproved indication [Unknown]

NARRATIVE: CASE EVENT DATE: 20220713
